FAERS Safety Report 9942705 (Version 1)
Quarter: 2014Q1

REPORT INFORMATION
  Report Type: Report from Study
  Country: US (occurrence: US)
  Receive Date: 20140303
  Receipt Date: 20140303
  Transmission Date: 20141002
  Serious: No
  Sender: FDA-Public Use
  Company Number: US-ABBVIE-13P-163-1045300-00

PATIENT
  Age: 74 Year
  Sex: Female

DRUGS (14)
  1. HUMIRA [Suspect]
     Indication: CROHN^S DISEASE
     Dates: start: 20121214
  2. DOXEPIN [Concomitant]
     Indication: DEPRESSION
     Dosage: AT NIGHT
  3. NEXIUM [Concomitant]
     Indication: GASTRIC DISORDER
  4. FOLIC ACID [Concomitant]
     Indication: PRODUCT USED FOR UNKNOWN INDICATION
     Dosage: 1 MG DAILY
  5. TYLENOL [Concomitant]
     Indication: PAIN
  6. MVI [Concomitant]
     Indication: PRODUCT USED FOR UNKNOWN INDICATION
     Dosage: DAILY
  7. CALCIUM WITH D [Concomitant]
     Indication: PRODUCT USED FOR UNKNOWN INDICATION
  8. APRESOLINE [Concomitant]
     Indication: IRRITABLE BOWEL SYNDROME
     Dosage: AT NIGHT
  9. LASIX [Concomitant]
     Indication: CORONARY ARTERY DISEASE
     Dosage: 40 MG DAILY
  10. COZAAR [Concomitant]
     Indication: CORONARY ARTERY DISEASE
     Dosage: 100 MG DAILY
  11. KCL [Concomitant]
     Indication: PRODUCT USED FOR UNKNOWN INDICATION
  12. COREG [Concomitant]
     Indication: CORONARY ARTERY DISEASE
  13. VITAMIN B12 [Concomitant]
     Indication: BLOOD IRON DECREASED
     Route: 030
  14. IRON [Concomitant]
     Indication: PRODUCT USED FOR UNKNOWN INDICATION

REACTIONS (1)
  - Diarrhoea [Recovered/Resolved]
